FAERS Safety Report 11871500 (Version 14)
Quarter: 2016Q3

REPORT INFORMATION
  Report Type: Report from Study
  Country: CA (occurrence: CA)
  Receive Date: 20151228
  Receipt Date: 20160930
  Transmission Date: 20161109
  Serious: Yes (Other)
  Sender: FDA-Public Use
  Company Number: CA-ROCHE-1481357

PATIENT
  Age: 71 Year
  Sex: Female
  Weight: 56 kg

DRUGS (9)
  1. PERJETA [Suspect]
     Active Substance: PERTUZUMAB
     Indication: HER-2 POSITIVE BREAST CANCER
     Dosage: 1 LOADING DOSE OVER 60 MINS
     Route: 042
     Dates: start: 20141120
  2. NASONEX [Concomitant]
     Active Substance: MOMETASONE FUROATE
  3. LETROZOL [Concomitant]
     Active Substance: LETROZOLE
  4. HERCEPTIN [Suspect]
     Active Substance: TRASTUZUMAB
     Indication: HER-2 POSITIVE BREAST CANCER
     Route: 042
     Dates: start: 20141120
  5. ATENOLOL. [Concomitant]
     Active Substance: ATENOLOL
  6. PERJETA [Suspect]
     Active Substance: PERTUZUMAB
     Dosage: LAST DOSE WAS ON 09/MAR/2015
     Route: 042
     Dates: start: 20141211
  7. METFORMIN [Concomitant]
     Active Substance: METFORMIN HYDROCHLORIDE
  8. CARBOCAL [Concomitant]
     Active Substance: CALCIUM CARBONATE
  9. ATORVASTATIN [Concomitant]
     Active Substance: ATORVASTATIN

REACTIONS (35)
  - Infusion related reaction [Unknown]
  - Rhinorrhoea [Unknown]
  - Blood pressure diastolic decreased [Unknown]
  - Fatigue [Recovered/Resolved]
  - Nasopharyngitis [Unknown]
  - Blood pressure systolic increased [Unknown]
  - Lymph gland infection [Unknown]
  - Diarrhoea [Not Recovered/Not Resolved]
  - Paraesthesia [Not Recovered/Not Resolved]
  - Heart rate decreased [Unknown]
  - Lymphoedema [Unknown]
  - Cellulitis [Recovered/Resolved]
  - Urinary tract infection [Recovering/Resolving]
  - Infection [Unknown]
  - Pyrexia [Recovered/Resolved]
  - Pruritus [Not Recovered/Not Resolved]
  - Blood chloride decreased [Unknown]
  - Dental caries [Unknown]
  - Dermatitis [Recovering/Resolving]
  - Mean cell haemoglobin decreased [Unknown]
  - Blood pressure increased [Unknown]
  - Erythema [Not Recovered/Not Resolved]
  - Skin disorder [Not Recovered/Not Resolved]
  - Hypotension [Unknown]
  - Heart rate decreased [Unknown]
  - Breast pain [Recovered/Resolved]
  - Weight decreased [Unknown]
  - Red cell distribution width increased [Unknown]
  - Lymphadenopathy [Not Recovered/Not Resolved]
  - Skin fissures [Unknown]
  - Mean platelet volume decreased [Unknown]
  - Skin ulcer [Unknown]
  - Weight increased [Not Recovered/Not Resolved]
  - Aspartate aminotransferase decreased [Unknown]
  - Hypoaesthesia [Unknown]

NARRATIVE: CASE EVENT DATE: 20141120
